FAERS Safety Report 4886653-2 (Version None)
Quarter: 2006Q1

REPORT INFORMATION
  Report Type: 
  Country: None (occurrence: None)
  Receive Date: 20060119
  Receipt Date: 20060104
  Transmission Date: 20060701
  Serious: Yes (Other)
  Sender: FDA-Public Use
  Company Number: 8014105

PATIENT
  Sex: Male

DRUGS (2)
  1. KEPPRA [Suspect]
     Dosage: 2500 MG /D
  2. EPANUTIN /00017402/ [Suspect]
     Dosage: 125 MG 2/D

REACTIONS (5)
  - ANTICONVULSANT DRUG LEVEL INCREASED [None]
  - CONVULSION [None]
  - DRUG INTERACTION [None]
  - DRUG TOXICITY [None]
  - MUSCLE SPASMS [None]
